FAERS Safety Report 24017937 (Version 2)
Quarter: 2024Q3

REPORT INFORMATION
  Report Type: Spontaneous
  Country: US (occurrence: US)
  Receive Date: 20240627
  Receipt Date: 20240712
  Transmission Date: 20241017
  Serious: Yes (Other)
  Sender: TEVA
  Company Number: US-TEVA-VS-3212085

PATIENT
  Age: 17 Year
  Sex: Male

DRUGS (6)
  1. METHOTREXATE [Suspect]
     Active Substance: METHOTREXATE
     Indication: Acute lymphocytic leukaemia
     Dosage: HIGH DOSE FOR 1 MONTHS
     Route: 037
     Dates: start: 2022
  2. METHOTREXATE [Suspect]
     Active Substance: METHOTREXATE
     Indication: Acute lymphocytic leukaemia
     Dosage: HIGH DOSE FOR 5 MONTHS
     Route: 037
     Dates: start: 2022
  3. PFIZER-BIONTECH COVID-19 VACCINE [Suspect]
     Active Substance: TOZINAMERAN
     Indication: COVID-19 immunisation
     Dosage: PFIZER-BIONTECH MRNA VACCINE, SINGLE DOSE
     Route: 065
     Dates: start: 202109
  4. VINCRISTINE [Suspect]
     Active Substance: VINCRISTINE
     Indication: Acute lymphocytic leukaemia
     Dosage: FOR 1 MONTH
     Route: 037
     Dates: start: 2022
  5. PEGASPARGASE [Suspect]
     Active Substance: PEGASPARGASE
     Indication: Acute lymphocytic leukaemia
     Dosage: FOR 1 MONTH
     Route: 037
     Dates: start: 2022
  6. DAUNORUBICIN [Suspect]
     Active Substance: DAUNORUBICIN
     Indication: Acute lymphocytic leukaemia
     Dosage: FOR 1 MONTHS
     Route: 037
     Dates: start: 2022

REACTIONS (1)
  - Viral mutation identified [Unknown]
